FAERS Safety Report 19980671 (Version 1)
Quarter: 2021Q4

REPORT INFORMATION
  Report Type: Spontaneous
  Country: GB (occurrence: GB)
  Receive Date: 20211021
  Receipt Date: 20211021
  Transmission Date: 20220304
  Serious: Yes (Other)
  Sender: FDA-Public Use
  Company Number: GB-SLATE RUN PHARMACEUTICALS-21GB000724

PATIENT

DRUGS (12)
  1. POTASSIUM CHLORIDE [Suspect]
     Active Substance: POTASSIUM CHLORIDE
     Indication: Maternal exposure during pregnancy
     Dosage: UNK
     Route: 015
  2. MAGNESIUM [Concomitant]
     Active Substance: MAGNESIUM
     Indication: Maternal exposure during pregnancy
     Route: 015
  3. OXYGEN [Concomitant]
     Active Substance: OXYGEN
     Indication: Maternal exposure during pregnancy
     Route: 015
  4. FUROSEMIDE [Concomitant]
     Active Substance: FUROSEMIDE
     Indication: Maternal exposure during pregnancy
     Route: 015
  5. DIAMORPHINE [Concomitant]
     Active Substance: DIAMORPHINE
     Indication: Maternal exposure during pregnancy
     Route: 015
  6. BISOPROLOL [Concomitant]
     Active Substance: BISOPROLOL
     Indication: Maternal exposure during pregnancy
     Route: 015
  7. TINZAPARIN [Concomitant]
     Active Substance: TINZAPARIN
     Indication: Maternal exposure during pregnancy
     Route: 015
  8. UNSPECIFIED INGREDIENT [Concomitant]
     Active Substance: UNSPECIFIED INGREDIENT
     Indication: Maternal therapy to enhance foetal lung maturity
     Route: 015
  9. BUPIVACAINE [Concomitant]
     Active Substance: BUPIVACAINE
     Indication: Maternal exposure during pregnancy
     Route: 015
  10. SODIUM LACTATE [Concomitant]
     Active Substance: SODIUM LACTATE
     Indication: Maternal exposure during pregnancy
     Route: 015
  11. PHENYLEPHRINE [Concomitant]
     Active Substance: PHENYLEPHRINE HYDROCHLORIDE
     Indication: Maternal exposure during pregnancy
     Route: 015
  12. ROPIVACAINE. [Concomitant]
     Active Substance: ROPIVACAINE HYDROCHLORIDE
     Indication: Maternal exposure during pregnancy
     Route: 015

REACTIONS (3)
  - Apgar score low [Recovering/Resolving]
  - Premature baby [Recovering/Resolving]
  - Foetal exposure during pregnancy [Recovered/Resolved]
